FAERS Safety Report 5390943-7 (Version None)
Quarter: 2007Q3

REPORT INFORMATION
  Report Type: 
  Country: None (occurrence: None)
  Receive Date: 20070717
  Receipt Date: 20070702
  Transmission Date: 20080115
  Serious: Yes (Hospitalization)
  Sender: FDA-Public Use
  Company Number: 015195

PATIENT
  Sex: Male
  Weight: 120.2 kg

DRUGS (3)
  1. PROPRANOLOL [Suspect]
     Indication: HYPERTENSION
     Dosage: 40 MG,  BID, ORAL
     Route: 048
     Dates: start: 20050101
  2. LEVOTHYROXINE SODIUM [Suspect]
     Dosage: SEE IMAGE
     Route: 048
  3. TERAZOSIN HCL [Concomitant]

REACTIONS (3)
  - DYSPNOEA [None]
  - MENTAL DISORDER [None]
  - THYROID FUNCTION TEST ABNORMAL [None]
